FAERS Safety Report 5745142-3 (Version None)
Quarter: 2008Q2

REPORT INFORMATION
  Report Type: 
  Country: None (occurrence: None)
  Receive Date: 20080521
  Receipt Date: 20080513
  Transmission Date: 20081010
  Serious: Yes (Other)
  Sender: FDA-Public Use
  Company Number: PHEH2008US04584

PATIENT
  Age: 67 Year
  Sex: Male
  Weight: 96.145 kg

DRUGS (5)
  1. VITAMINS [Concomitant]
  2. EXFORGE [Suspect]
     Indication: HYPERTENSION
     Dosage: 5AMLO/160VAL, UNK
     Dates: start: 20080201, end: 20080301
  3. EXFORGE [Suspect]
     Dosage: 10AMLO/320VAL, UNK
     Dates: start: 20080301, end: 20080301
  4. EXFORGE [Suspect]
     Dosage: 5AMLO/160VAL, UNK
     Dates: start: 20080301
  5. SIMVASTATIN [Concomitant]

REACTIONS (3)
  - BLOOD PRESSURE INADEQUATELY CONTROLLED [None]
  - BLOOD PRESSURE SYSTOLIC DECREASED [None]
  - LOSS OF CONSCIOUSNESS [None]
